FAERS Safety Report 8254232-5 (Version None)
Quarter: 2012Q2

REPORT INFORMATION
  Report Type: 
  Country: None (occurrence: None)
  Receive Date: 20120402
  Receipt Date: 20120322
  Transmission Date: 20120825
  Serious: No
  Sender: FDA-Public Use
  Company Number: US-AMGEN-USASP2012018575

PATIENT
  Age: 29 Year
  Sex: Female

DRUGS (1)
  1. ENBREL [Suspect]
     Indication: HIDRADENITIS
     Dosage: 50 MG, QWK
     Dates: start: 20101127

REACTIONS (4)
  - CYST [None]
  - HYPOKINESIA [None]
  - IMPAIRED HEALING [None]
  - MUSCULOSKELETAL PAIN [None]
